FAERS Safety Report 24751458 (Version 1)
Quarter: 2024Q4

REPORT INFORMATION
  Report Type: Report from Study
  Country: US (occurrence: US)
  Receive Date: 20241219
  Receipt Date: 20241219
  Transmission Date: 20250115
  Serious: Yes (Other)
  Sender: TAKEDA
  Company Number: US-TAKEDA-2024TUS015309

PATIENT
  Sex: Female

DRUGS (2)
  1. HUMAN IMMUNOGLOBULIN G [Suspect]
     Active Substance: HUMAN IMMUNOGLOBULIN G
     Indication: Primary immunodeficiency syndrome
     Dosage: UNK UNK, 1/WEEK
  2. HUMAN IMMUNOGLOBULIN G [Suspect]
     Active Substance: HUMAN IMMUNOGLOBULIN G
     Indication: Immunodeficiency common variable

REACTIONS (8)
  - Brain injury [Recovering/Resolving]
  - Concussion [Recovering/Resolving]
  - Infection [Recovering/Resolving]
  - Viral infection [Unknown]
  - Insurance issue [Recovered/Resolved]
  - Product use issue [Recovered/Resolved]
  - Road traffic accident [Recovering/Resolving]
  - Malaise [Unknown]
